FAERS Safety Report 18218029 (Version 1)
Quarter: 2020Q3

REPORT INFORMATION
  Report Type: Spontaneous
  Country: CN (occurrence: CN)
  Receive Date: 20200901
  Receipt Date: 20200901
  Transmission Date: 20201103
  Serious: Yes (Other)
  Sender: FDA-Public Use
  Company Number: CN-BAXTER-2020BAX017711

PATIENT
  Age: 59 Year
  Sex: Female
  Weight: 53 kg

DRUGS (6)
  1. 0.9% SODIUM CHLORIDE INJECTION [Suspect]
     Active Substance: SODIUM CHLORIDE
     Dosage: DAY 1, 0.9% SODIUM CHLORIDE  250ML + HERCEPTIN 306 MG
     Route: 041
     Dates: start: 20200731, end: 20200731
  2. TAXOTERE [Suspect]
     Active Substance: DOCETAXEL
     Indication: BREAST CANCER FEMALE
     Dosage: DAY 1, TCTXH CHEMOTHERAPY, TCTXH CHEMOTHERAPY
     Route: 041
     Dates: start: 20200731, end: 20200731
  3. 0.9% SODIUM CHLORIDE INJECTION [Suspect]
     Active Substance: SODIUM CHLORIDE
     Dosage: DAY 1, 0.9% SODIUM CHLORIDE 250ML + TAXOTERE 132MG
     Route: 041
     Dates: start: 20200731, end: 20200731
  4. ENDOXAN [Suspect]
     Active Substance: CYCLOPHOSPHAMIDE
     Indication: BREAST CANCER FEMALE
     Dosage: DAY 1, TCTXH CHEMOTHERAPY
     Route: 041
     Dates: start: 20200731, end: 20200731
  5. 0.9% SODIUM CHLORIDE INJECTION [Suspect]
     Active Substance: SODIUM CHLORIDE
     Indication: MEDICATION DILUTION
     Dosage: DAY 1, 0.9% SODIUM CHLORIDE 100ML + ENDOXAN 880MG, TCTXH CHEMOTHERAPY
     Route: 041
     Dates: start: 20200731, end: 20200731
  6. HERCEPTIN [Suspect]
     Active Substance: TRASTUZUMAB
     Indication: BREAST CANCER FEMALE
     Dosage: DAY 1, TCTXH CHEMOTHERAPY, TCTXH CHEMOTHERAPY
     Route: 041
     Dates: start: 20200731, end: 20200731

REACTIONS (1)
  - Myelosuppression [Not Recovered/Not Resolved]

NARRATIVE: CASE EVENT DATE: 20200803
